FAERS Safety Report 16597075 (Version 1)
Quarter: 2019Q3

REPORT INFORMATION
  Report Type: Spontaneous
  Country: US (occurrence: US)
  Receive Date: 20190719
  Receipt Date: 20190719
  Transmission Date: 20191004
  Serious: No
  Sender: FDA-Public Use
  Company Number: US-BAYER-2019-134643

PATIENT
  Age: 11 Year
  Sex: Male

DRUGS (2)
  1. ASTHMA [TERBUTALINE SULFATE] [Concomitant]
     Dosage: UNK
  2. CLARITIN [Suspect]
     Active Substance: LORATADINE
     Dosage: 2 TABLESPOONS MARKED ON CUP TWICE.
     Route: 048
     Dates: start: 20190717

REACTIONS (1)
  - Accidental exposure to product by child [Recovered/Resolved]

NARRATIVE: CASE EVENT DATE: 20190717
